FAERS Safety Report 8826773 (Version 2)
Quarter: 2012Q4

REPORT INFORMATION
  Report Type: 
  Country: FR (occurrence: FR)
  Receive Date: 20121005
  Receipt Date: 20121023
  Transmission Date: 20130627
  Serious: Yes (Life-Threatening)
  Sender: FDA-Public Use
  Company Number: FR-GLAXOSMITHKLINE-B0833329A

PATIENT
  Age: 34 Year
  Sex: Female
  Weight: 65 kg

DRUGS (4)
  1. ARIXTRA [Suspect]
     Indication: MYOCARDIAL INFARCTION
     Dosage: 2.5MG Per day
     Route: 058
     Dates: start: 20120813, end: 20120819
  2. KARDEGIC [Suspect]
     Indication: MYOCARDIAL INFARCTION
     Dosage: 75MG per day
     Route: 048
     Dates: start: 20120810
  3. PRASUGREL [Suspect]
     Indication: MYOCARDIAL INFARCTION
     Dosage: 10MG per day
     Dates: start: 20120811, end: 20120821
  4. LOVENOX [Concomitant]
     Dates: end: 20120813

REACTIONS (2)
  - Thrombocytopenia [Recovered/Resolved]
  - Off label use [Unknown]
